FAERS Safety Report 4494141-0 (Version None)
Quarter: 2004Q4

REPORT INFORMATION
  Report Type: 
  Country: None (occurrence: None)
  Receive Date: 20041104
  Receipt Date: 20041104
  Transmission Date: 20050328
  Serious: No
  Sender: FDA-Public Use
  Company Number: None

PATIENT
  Sex: Female
  Weight: 72.5755 kg

DRUGS (2)
  1. LARIAM [Suspect]
     Indication: PROPHYLAXIS
     Dosage: 250 MG WEEKLY ORAL
     Route: 048
     Dates: start: 20010515, end: 20010630
  2. LARIAM [Suspect]
     Indication: PROPHYLAXIS
     Dosage: 250 MG WEEKLY ORAL
     Route: 048
     Dates: start: 20010915, end: 20011005

REACTIONS (8)
  - CRYING [None]
  - DEPRESSION [None]
  - FATIGUE [None]
  - FEELING ABNORMAL [None]
  - HYPERSOMNIA [None]
  - IMPAIRED WORK ABILITY [None]
  - MOOD SWINGS [None]
  - TENSION [None]
